FAERS Safety Report 8238735-5 (Version None)
Quarter: 2012Q1

REPORT INFORMATION
  Report Type: 
  Country: None (occurrence: None)
  Receive Date: 20120327
  Receipt Date: 20120323
  Transmission Date: 20120608
  Serious: No
  Sender: FDA-Public Use
  Company Number: US-BAYER-2012-029706

PATIENT

DRUGS (1)
  1. MAGNEVIST [Suspect]
     Indication: NUCLEAR MAGNETIC RESONANCE IMAGING
     Dosage: 15 ML, ONCE
     Dates: start: 20120131, end: 20120131

REACTIONS (4)
  - THROAT IRRITATION [None]
  - TACHYCARDIA [None]
  - BLOOD PRESSURE INCREASED [None]
  - PRODUCTIVE COUGH [None]
